FAERS Safety Report 8897865 (Version 1)
Quarter: 2012Q4

REPORT INFORMATION
  Report Type: 
  Country: US (occurrence: US)
  Receive Date: 20121109
  Receipt Date: 20121109
  Transmission Date: 20130627
  Serious: Yes (Other)
  Sender: FDA-Public Use
  Company Number: US-ELI_LILLY_AND_COMPANY-US201211000470

PATIENT
  Sex: Female
  Weight: 45 kg

DRUGS (1)
  1. EFFIENT [Suspect]
     Indication: STENT PLACEMENT
     Dosage: 10 mg, unknown
     Route: 065
     Dates: start: 20110201

REACTIONS (5)
  - Arterial therapeutic procedure [Unknown]
  - Angioplasty [Unknown]
  - Carotid artery occlusion [Unknown]
  - Drug dispensing error [Unknown]
  - Off label use [Unknown]
